FAERS Safety Report 5376445-2 (Version None)
Quarter: 2007Q3

REPORT INFORMATION
  Report Type: 
  Country: None (occurrence: None)
  Receive Date: 20070702
  Receipt Date: 20070621
  Transmission Date: 20080115
  Serious: Yes (Other)
  Sender: FDA-Public Use
  Company Number: US-PFIZER INC-2007052185

PATIENT
  Sex: Male
  Weight: 80.909 kg

DRUGS (3)
  1. CHANTIX [Suspect]
     Indication: SMOKING CESSATION THERAPY
     Dates: start: 20070608, end: 20070615
  2. COZAAR [Concomitant]
  3. PRAVASTATIN [Concomitant]

REACTIONS (2)
  - HAEMORRHAGE URINARY TRACT [None]
  - PAIN [None]
